FAERS Safety Report 23332553 (Version 3)
Quarter: 2024Q1

REPORT INFORMATION
  Report Type: Spontaneous
  Country: FR (occurrence: FR)
  Receive Date: 20231222
  Receipt Date: 20240108
  Transmission Date: 20240409
  Serious: Yes (Life-Threatening, Hospitalization)
  Sender: FDA-Public Use
  Company Number: None

PATIENT
  Age: 2 Year
  Sex: Male
  Weight: 10 kg

DRUGS (13)
  1. CEFTRIAXONE [Suspect]
     Active Substance: CEFTRIAXONE\CEFTRIAXONE SODIUM
     Indication: Hyperthermia
     Dosage: 100 MILLIGRAM/KILOGRAM, 1 TOTAL
     Route: 042
     Dates: start: 20231120, end: 20231120
  2. IBUPROFEN [Suspect]
     Active Substance: IBUPROFEN
     Indication: Pain
     Dosage: UNK
     Route: 065
     Dates: start: 20231118, end: 20231120
  3. VANCOMYCIN [Suspect]
     Active Substance: VANCOMYCIN
     Indication: Hyperthermia
     Dosage: 40 MILLIGRAM/KILOGRAM, 1 TOTAL
     Route: 042
     Dates: start: 20231120, end: 20231120
  4. ACETAMINOPHEN [Suspect]
     Active Substance: ACETAMINOPHEN
     Indication: Pain
     Dosage: UNK
     Route: 048
     Dates: start: 20231102, end: 20231123
  5. CLONIDINE [Suspect]
     Active Substance: CLONIDINE
     Indication: Dystonia
     Dosage: 1 MICROGRAM/KILOGRAM, QD
     Route: 048
     Dates: start: 20231118, end: 20231120
  6. RIVOTRIL [Suspect]
     Active Substance: CLONAZEPAM
     Indication: Dystonia
     Dosage: 1 DROP (1/12 MILLILITRE), QD
     Route: 048
     Dates: end: 20231113
  7. RIVOTRIL [Suspect]
     Active Substance: CLONAZEPAM
     Dosage: 1 DROP (1/12 MILLILITRE), BID
     Route: 048
     Dates: start: 20231114, end: 20231116
  8. RIVOTRIL [Suspect]
     Active Substance: CLONAZEPAM
     Dosage: 1 DROP (1/12 MILLILITRE), Q8H
     Route: 048
     Dates: start: 20231118, end: 20231120
  9. AMITRIPTYLINE HYDROCHLORIDE [Suspect]
     Active Substance: AMITRIPTYLINE HYDROCHLORIDE
     Indication: Dystonia
     Dosage: 2 DROP (1/12 MILLILITRE) Q8H
     Route: 048
     Dates: end: 20231120
  10. CLONIDINE [Suspect]
     Active Substance: CLONIDINE
     Indication: Dystonia
     Dosage: 10 MICROGRAM/KILOGRAM, QD
     Route: 042
     Dates: start: 20231117, end: 20231117
  11. GENTAMICIN [Suspect]
     Active Substance: GENTAMICIN
     Indication: Hyperthermia
     Dosage: 5 MILLIGRAM/KILOGRAM
     Route: 065
     Dates: start: 20231120, end: 20231120
  12. DOLIPRANE [Concomitant]
     Active Substance: ACETAMINOPHEN
     Dosage: UNK
     Route: 065
  13. TRAMADOL [Concomitant]
     Active Substance: TRAMADOL\TRAMADOL HYDROCHLORIDE
     Dosage: UNK
     Route: 065

REACTIONS (8)
  - Acute kidney injury [Recovered/Resolved]
  - Hyperthermia [Recovered/Resolved]
  - Hepatocellular injury [Recovering/Resolving]
  - Bradycardia [Recovered/Resolved]
  - Incorrect dose administered [Unknown]
  - Accidental overdose [Unknown]
  - Hypotension [Recovered/Resolved]
  - Off label use [Unknown]

NARRATIVE: CASE EVENT DATE: 20231117
